FAERS Safety Report 12763879 (Version 1)
Quarter: 2016Q3

REPORT INFORMATION
  Report Type: Spontaneous
  Country: US (occurrence: US)
  Receive Date: 20160917
  Receipt Date: 20160917
  Transmission Date: 20161109
  Serious: No
  Sender: FDA-Public Use
  Company Number: None

PATIENT
  Sex: Female

DRUGS (1)
  1. HUMIRA [Suspect]
     Active Substance: ADALIMUMAB
     Indication: CROHN^S DISEASE
     Route: 058
     Dates: start: 20150701

REACTIONS (5)
  - Mood altered [None]
  - Confusional state [None]
  - Delusion [None]
  - Sleep disorder [None]
  - Hallucination, auditory [None]

NARRATIVE: CASE EVENT DATE: 20160601
